FAERS Safety Report 6677319-7 (Version None)
Quarter: 2010Q2

REPORT INFORMATION
  Report Type: 
  Country: None (occurrence: None)
  Receive Date: 20100408
  Receipt Date: 20100408
  Transmission Date: 20101027
  Serious: No
  Sender: FDA-Public Use
  Company Number: None

PATIENT
  Age: 73 Year
  Sex: Male
  Weight: 99 kg

DRUGS (10)
  1. NORCO [Suspect]
     Indication: BACK PAIN
     Dosage: 1-2 TABS EVERY DAY AS NEEDED PO
     Route: 048
  2. ATIVAN [Concomitant]
  3. CYMBALTA [Concomitant]
  4. DOCUSATE [Concomitant]
  5. SKELAXIN [Concomitant]
  6. ZESTRIL [Concomitant]
  7. LEVAQUIN [Concomitant]
  8. ROCEPHIN [Concomitant]
  9. DUONEB [Concomitant]
  10. RISPERDAL [Concomitant]

REACTIONS (3)
  - LETHARGY [None]
  - OXYGEN SATURATION DECREASED [None]
  - TREMOR [None]
